FAERS Safety Report 25310579 (Version 1)
Quarter: 2025Q2

REPORT INFORMATION
  Report Type: Spontaneous
  Country: FR (occurrence: FR)
  Receive Date: 20250514
  Receipt Date: 20250514
  Transmission Date: 20250717
  Serious: Yes (Other)
  Sender: ROCHE
  Company Number: None

PATIENT
  Age: 64 Year
  Sex: Female
  Weight: 60.0 kg

DRUGS (6)
  1. CELLCEPT [Suspect]
     Active Substance: MYCOPHENOLATE MOFETIL
     Indication: Heart transplant
     Dosage: 250X2/J
     Route: 048
     Dates: start: 20231215, end: 20240108
  2. CELLCEPT [Suspect]
     Active Substance: MYCOPHENOLATE MOFETIL
     Dosage: 500X2/J
     Route: 048
     Dates: start: 20231018, end: 20231214
  3. CELLCEPT [Suspect]
     Active Substance: MYCOPHENOLATE MOFETIL
     Dosage: 750X2/J; LAST DOSE OF MYCOPHENOLATE MOFETIL WAS RECEIVED ON 27-AUG-2024.
     Route: 048
     Dates: start: 20240109
  4. NEORAL [Concomitant]
     Active Substance: CYCLOSPORINE
     Indication: Heart transplant
     Dates: start: 20231022
  5. VALGANCICLOVIR HYDROCHLORIDE [Concomitant]
     Active Substance: VALGANCICLOVIR HYDROCHLORIDE
     Indication: Cytomegalovirus infection
     Route: 065
     Dates: start: 20240106, end: 20240118
  6. VALGANCICLOVIR HYDROCHLORIDE [Concomitant]
     Active Substance: VALGANCICLOVIR HYDROCHLORIDE
     Dosage: 900 MGX2/J
     Route: 065
     Dates: start: 20240119, end: 20240305

REACTIONS (1)
  - Leukopenia [Recovering/Resolving]

NARRATIVE: CASE EVENT DATE: 20240122
